FAERS Safety Report 5093374-2 (Version None)
Quarter: 2006Q3

REPORT INFORMATION
  Report Type: 
  Country: None (occurrence: None)
  Receive Date: 20060828
  Receipt Date: 20060814
  Transmission Date: 20061208
  Serious: Yes (Hospitalization, Other)
  Sender: FDA-Public Use
  Company Number: 2006079891

PATIENT
  Age: 69 Year
  Sex: Female
  Weight: 92.5 kg

DRUGS (8)
  1. LYRICA [Suspect]
     Indication: POLYNEUROPATHY
     Dosage: 150 MG (75 MG, 2 IN 1 D), ORAL
     Route: 048
     Dates: start: 20060527, end: 20060601
  2. RAMIPRIL [Concomitant]
  3. TOREM (TORASEMIDE) [Concomitant]
  4. MST (MORPHINE SULFATE) [Concomitant]
  5. TERBINAFINE HCL [Concomitant]
  6. INSULIN ACTRAPID   NOVO NORDISK   (INSULIN HUMAN) [Concomitant]
  7. MOVICOL MACROGOL, POTASSIUM CHLORIDE, SODOUM BICARBONATE, SODIUM CHLOR [Concomitant]
  8. SPIRONOLACTONE [Concomitant]

REACTIONS (12)
  - BLISTER [None]
  - BLOOD CREATININE INCREASED [None]
  - BODY TINEA [None]
  - C-REACTIVE PROTEIN INCREASED [None]
  - INFLAMMATION [None]
  - MALAISE [None]
  - PRURITUS [None]
  - PUSTULAR PSORIASIS [None]
  - RASH GENERALISED [None]
  - SECRETION DISCHARGE [None]
  - THERAPY NON-RESPONDER [None]
  - WHITE BLOOD CELL COUNT INCREASED [None]
